FAERS Safety Report 9475117 (Version 2)
Quarter: 2013Q3

REPORT INFORMATION
  Report Type: Spontaneous
  Country: US (occurrence: US)
  Receive Date: 20130824
  Receipt Date: 20130905
  Transmission Date: 20140515
  Serious: No
  Sender: FDA-Public Use
  Company Number: US-009507513-1308USA007457

PATIENT
  Age: 54 Year
  Sex: Male

DRUGS (5)
  1. DULERA [Suspect]
     Indication: ASTHMA
     Dosage: 2 PUFF IN THE MORNING AND 2 PUFFS IN THE EVENING
     Route: 055
     Dates: start: 201306
  2. VENTOLIN (ALBUTEROL) [Concomitant]
  3. SINGULAIR [Concomitant]
  4. NASONEX [Concomitant]
  5. FUROSEMIDE [Concomitant]

REACTIONS (2)
  - Cough [Recovering/Resolving]
  - Product quality issue [Unknown]
